FAERS Safety Report 10729658 (Version 1)
Quarter: 2015Q1

REPORT INFORMATION
  Report Type: Spontaneous
  Country: US (occurrence: None)
  Receive Date: 20150112
  Receipt Date: 20150112
  Transmission Date: 20150721
  Serious: Yes (Hospitalization)
  Sender: FDA-Public Use
  Company Number: 2014AP001922

PATIENT
  Age: 49 Year
  Sex: Female

DRUGS (7)
  1. CARVEDILOL (CARVEDILOL) [Concomitant]
     Active Substance: CARVEDILOL
  2. VALACYCLOVIR [Concomitant]
     Active Substance: VALACYCLOVIR HYDROCHLORIDE
  3. PREDNISONE (PREDNISONE) [Concomitant]
     Active Substance: PREDNISONE
  4. ROMIPLOSTIM (ROMIPLOSTIM) [Concomitant]
  5. DILTIAZEM (DILTIAZEM) [Concomitant]
  6. MYCOPHENOLATE MOFETIL. [Suspect]
     Active Substance: MYCOPHENOLATE MOFETIL
  7. CALCITRIOL (CALCITRIOL) [Concomitant]
     Active Substance: CALCITRIOL

REACTIONS (1)
  - Colitis [None]
